FAERS Safety Report 7577817-8 (Version None)
Quarter: 2011Q2

REPORT INFORMATION
  Report Type: 
  Country: None (occurrence: None)
  Receive Date: 20110628
  Receipt Date: 20110615
  Transmission Date: 20111010
  Serious: Yes (Other)
  Sender: FDA-Public Use
  Company Number: PHHY2011AU46832

PATIENT
  Sex: Female

DRUGS (2)
  1. CLOZAPINE [Suspect]
     Dosage: 150 MG,
  2. CLOZAPINE [Suspect]
     Dosage: 200 MG
     Route: 048
     Dates: start: 19980121

REACTIONS (5)
  - VOMITING [None]
  - NEUTROPHIL COUNT DECREASED [None]
  - KIDNEY INFECTION [None]
  - CYTOMEGALOVIRUS TEST POSITIVE [None]
  - WHITE BLOOD CELL COUNT DECREASED [None]
